FAERS Safety Report 18375976 (Version 1)
Quarter: 2020Q4

REPORT INFORMATION
  Report Type: Spontaneous
  Country: US (occurrence: US)
  Receive Date: 20201010
  Receipt Date: 20201010
  Transmission Date: 20210114
  Serious: No
  Sender: FDA-Public Use
  Company Number: None

PATIENT
  Age: 75 Year
  Sex: Male
  Weight: 80.1 kg

DRUGS (6)
  1. PREDNISONE 5MG [Suspect]
     Active Substance: PREDNISONE
     Indication: NECK PAIN
     Dosage: ?          QUANTITY:6 TABLET(S);?
     Route: 048
     Dates: start: 20200825, end: 20200829
  2. ASPRIN [Concomitant]
     Active Substance: ASPIRIN
  3. AMLODIPINE [Concomitant]
     Active Substance: AMLODIPINE BESYLATE
  4. ALEVE [Concomitant]
     Active Substance: NAPROXEN SODIUM
  5. COENZYME Q10 [Concomitant]
     Active Substance: DIETARY SUPPLEMENT\UBIDECARENONE
  6. PREDNISONE 5MG [Suspect]
     Active Substance: PREDNISONE
     Indication: BACK PAIN
     Dosage: ?          QUANTITY:6 TABLET(S);?
     Route: 048
     Dates: start: 20200825, end: 20200829

REACTIONS (3)
  - Vision blurred [None]
  - Deafness [None]
  - Tinnitus [None]

NARRATIVE: CASE EVENT DATE: 20200901
